FAERS Safety Report 8556101-X (Version None)
Quarter: 2012Q3

REPORT INFORMATION
  Report Type: 
  Country: None (occurrence: None)
  Receive Date: 20120801
  Receipt Date: 20120723
  Transmission Date: 20120928
  Serious: Yes (Other)
  Sender: FDA-Public Use
  Company Number: NL-SANOFI-AVENTIS-2012SA052709

PATIENT
  Sex: Male

DRUGS (2)
  1. SOLOSTAR [Suspect]
     Indication: DEVICE THERAPY
  2. LANTUS SOLOSTAR [Suspect]
     Route: 058
     Dates: start: 20120606

REACTIONS (2)
  - ROAD TRAFFIC ACCIDENT [None]
  - SYNCOPE [None]
